FAERS Safety Report 18623781 (Version 2)
Quarter: 2020Q4

REPORT INFORMATION
  Report Type: Spontaneous
  Country: GB (occurrence: GB)
  Receive Date: 20201216
  Receipt Date: 20201229
  Transmission Date: 20210114
  Serious: No
  Sender: FDA-Public Use
  Company Number: GB-INSMED, INC.-E2B_00000367

PATIENT
  Age: 9 Year
  Sex: Male

DRUGS (7)
  1. MOXIFLOXACIN HYDROCHLORIDE. [Concomitant]
     Active Substance: MOXIFLOXACIN HYDROCHLORIDE
  2. AZITHROMYCIN ANHYDROUS. [Concomitant]
     Active Substance: AZITHROMYCIN ANHYDROUS
  3. COTRIMOXAZOLE [Concomitant]
     Active Substance: SULFAMETHOXAZOLE\TRIMETHOPRIM
  4. MOXIFLOXACIN HYDROCHLORIDE. [Concomitant]
     Active Substance: MOXIFLOXACIN HYDROCHLORIDE
     Indication: MYCOBACTERIUM ABSCESSUS INFECTION
     Route: 048
  5. COTRIMOXAZOLE [Concomitant]
     Active Substance: SULFAMETHOXAZOLE\TRIMETHOPRIM
     Indication: MYCOBACTERIUM ABSCESSUS INFECTION
     Route: 048
  6. AMIKACIN SULFATE. [Suspect]
     Active Substance: AMIKACIN SULFATE
     Indication: MYCOBACTERIUM ABSCESSUS INFECTION
     Route: 055
  7. AZITHROMYCIN ANHYDROUS. [Concomitant]
     Active Substance: AZITHROMYCIN ANHYDROUS
     Indication: MYCOBACTERIUM ABSCESSUS INFECTION
     Route: 048

REACTIONS (2)
  - Product administered to patient of inappropriate age [Unknown]
  - Off label use [Unknown]
